FAERS Safety Report 6213544-7 (Version None)
Quarter: 2009Q2

REPORT INFORMATION
  Report Type: 
  Country: None (occurrence: None)
  Receive Date: 20090603
  Receipt Date: 20090527
  Transmission Date: 20091009
  Serious: Yes (Hospitalization)
  Sender: FDA-Public Use
  Company Number: JP-WATSON-2009-03803

PATIENT
  Age: 65 Year
  Sex: Male

DRUGS (9)
  1. CHLORPROMAZINE HCL [Suspect]
     Indication: DEPRESSION
     Dosage: 75 MG, DAILY
     Route: 048
  2. CLOMIPRAMINE HYDROCHLORIDE (WATSON LABORATORIES) [Suspect]
     Indication: DEPRESSION
     Dosage: 150 MG, DAILY FOR ONE MONTH
  3. ESTAZOLAM (WATSON LABORATORIES) [Suspect]
     Indication: DEPRESSION
     Dosage: UNK
     Route: 048
  4. FLUVOXAMINE (WATSON LABORATORIES) [Suspect]
     Indication: DEPRESSION
     Dosage: 150 MG, DAILY
     Route: 048
  5. BROMAZEPAM [Suspect]
     Indication: DEPRESSION
     Dosage: 6 MG, DAILY
     Route: 048
  6. BROTIZOLAM [Suspect]
     Indication: DEPRESSION
     Dosage: UNK
     Route: 048
  7. MIANSERIN [Suspect]
     Indication: DEPRESSION
     Dosage: 20 MG, DAILY
     Route: 048
  8. SULPIRIDE [Suspect]
     Indication: DEPRESSION
     Dosage: 100 MG, DAILY
     Route: 048
  9. CANDESARTAN CILEXETIL [Concomitant]
     Indication: HYPERTENSION
     Dosage: UNK
     Route: 065

REACTIONS (2)
  - EXTRINSIC VASCULAR COMPRESSION [None]
  - PULMONARY EMBOLISM [None]
